FAERS Safety Report 10296531 (Version 2)
Quarter: 2014Q3

REPORT INFORMATION
  Report Type: Spontaneous
  Country: US (occurrence: US)
  Receive Date: 20140710
  Receipt Date: 20140718
  Transmission Date: 20150326
  Serious: Yes (Death, Hospitalization, Other)
  Sender: FDA-Public Use
  Company Number: US-JNJFOC-20140707055

PATIENT
  Age: 64 Year
  Sex: Male

DRUGS (1)
  1. IMBRUVICA [Suspect]
     Active Substance: IBRUTINIB
     Indication: CHRONIC LYMPHOCYTIC LEUKAEMIA
     Route: 048
     Dates: start: 20140220

REACTIONS (6)
  - Renal failure [Unknown]
  - Clostridium difficile infection [Unknown]
  - Neutropenia [Unknown]
  - Dehydration [Unknown]
  - Disease progression [Fatal]
  - Colitis [Unknown]

NARRATIVE: CASE EVENT DATE: 201406
